FAERS Safety Report 14895789 (Version 1)
Quarter: 2018Q2

REPORT INFORMATION
  Report Type: Spontaneous
  Country: US (occurrence: US)
  Receive Date: 20180515
  Receipt Date: 20180515
  Transmission Date: 20180711
  Serious: Yes (Hospitalization)
  Sender: FDA-Public Use
  Company Number: US-SA-2018SA133662

PATIENT
  Age: 85 Year
  Sex: Male

DRUGS (2)
  1. BCG FOR IMMUNOTHERAPY [Suspect]
     Active Substance: BACILLUS CALMETTE-GUERIN ANTIGEN, UNSPECIFIED SUBSTRAIN
     Indication: BLADDER CANCER
     Route: 043
  2. BCG FOR IMMUNOTHERAPY [Suspect]
     Active Substance: BACILLUS CALMETTE-GUERIN ANTIGEN, UNSPECIFIED SUBSTRAIN
     Indication: BLADDER CANCER
     Route: 043

REACTIONS (16)
  - Transaminases increased [Recovering/Resolving]
  - Malaise [Recovering/Resolving]
  - Sepsis [Recovering/Resolving]
  - Alveolitis allergic [Recovering/Resolving]
  - Hypoxia [Recovering/Resolving]
  - Complication associated with device [Recovering/Resolving]
  - Pyrexia [Recovering/Resolving]
  - Hyponatraemia [Recovering/Resolving]
  - Haematuria [Recovering/Resolving]
  - Interstitial lung disease [Recovering/Resolving]
  - Condition aggravated [Recovering/Resolving]
  - Disseminated Bacillus Calmette-Guerin infection [Recovering/Resolving]
  - Delirium [Recovering/Resolving]
  - Decreased appetite [Recovering/Resolving]
  - Acute kidney injury [Recovering/Resolving]
  - Supraventricular tachycardia [Recovering/Resolving]
